FAERS Safety Report 26016045 (Version 2)
Quarter: 2025Q4

REPORT INFORMATION
  Report Type: Spontaneous
  Country: US (occurrence: US)
  Receive Date: 20251110
  Receipt Date: 20251110
  Transmission Date: 20260118
  Serious: Yes (Hospitalization)
  Sender: IPSEN BIOPHARMACEUTICALS, INC.
  Company Number: US-IPSEN Group, Research and Development-2025-27392

PATIENT
  Age: 67 Year
  Sex: Female

DRUGS (8)
  1. IQIRVO [Suspect]
     Active Substance: ELAFIBRANOR
     Indication: Primary biliary cholangitis
     Dosage: 1 TABLET BY MOUTH EVERY MORNING
     Route: 048
  2. LACTOSE [Concomitant]
     Active Substance: LACTOSE
  3. IRON [Concomitant]
     Active Substance: IRON
  4. OMEPRAZOLE [Concomitant]
     Active Substance: OMEPRAZOLE
  5. LASIX [Concomitant]
     Active Substance: FUROSEMIDE
  6. POTASSIUM CHLORIDE [Concomitant]
     Active Substance: POTASSIUM CHLORIDE
  7. URSODIOL [Concomitant]
     Active Substance: URSODIOL
  8. VITAMINS [Concomitant]
     Active Substance: VITAMINS

REACTIONS (2)
  - Hospitalisation [Unknown]
  - Ammonia increased [Unknown]

NARRATIVE: CASE EVENT DATE: 20250801
